FAERS Safety Report 6808005-8 (Version None)
Quarter: 2010Q2

REPORT INFORMATION
  Report Type: 
  Country: None (occurrence: None)
  Receive Date: 20100629
  Receipt Date: 20090622
  Transmission Date: 20101027
  Serious: No
  Sender: FDA-Public Use
  Company Number: US-PFIZER INC-2008158470

PATIENT
  Sex: Female

DRUGS (2)
  1. XANAX [Suspect]
     Indication: BACK PAIN
     Dosage: UNK
     Dates: start: 20081201
  2. OPIOIDS [Concomitant]

REACTIONS (1)
  - LETHARGY [None]
